FAERS Safety Report 9732851 (Version 1)
Quarter: 2013Q4

REPORT INFORMATION
  Report Type: Spontaneous
  Country: US (occurrence: US)
  Receive Date: 20131205
  Receipt Date: 20131205
  Transmission Date: 20140711
  Serious: No
  Sender: FDA-Public Use
  Company Number: US-BAYER-2013-148421

PATIENT
  Sex: Male
  Weight: 131.5 kg

DRUGS (3)
  1. BAYER GENUINE ASPIRIN ORIGINAL STRENGTH [Suspect]
     Indication: BACK PAIN
  2. ALEVE CAPLET [Suspect]
     Indication: ANTIINFLAMMATORY THERAPY
     Dosage: 1 DF, BID
  3. ALEVE CAPLET [Suspect]
     Indication: BACK PAIN

REACTIONS (2)
  - Drug effect incomplete [None]
  - Drug ineffective [None]
